FAERS Safety Report 7251429-8 (Version None)
Quarter: 2011Q1

REPORT INFORMATION
  Report Type: 
  Country: None (occurrence: None)
  Receive Date: 20110128
  Receipt Date: 20110113
  Transmission Date: 20110831
  Serious: Yes (Other)
  Sender: FDA-Public Use
  Company Number: PHHO2010ZM15233

PATIENT
  Sex: Male
  Weight: 1.67 kg

DRUGS (1)
  1. ARTEMETHER,BENFLUMETOL [Suspect]
     Indication: MALARIA
     Route: 064

REACTIONS (5)
  - MATERNAL CONDITION AFFECTING FOETUS [None]
  - SMALL FOR DATES BABY [None]
  - DRUG EXPOSURE DURING PREGNANCY [None]
  - CYANOSIS [None]
  - PREMATURE BABY [None]
